FAERS Safety Report 6678689-6 (Version None)
Quarter: 2010Q2

REPORT INFORMATION
  Report Type: 
  Country: None (occurrence: None)
  Receive Date: 20100413
  Receipt Date: 20100331
  Transmission Date: 20101027
  Serious: Yes (Hospitalization, Other)
  Sender: FDA-Public Use
  Company Number: NO-PFIZER INC-2010003581

PATIENT
  Age: 41 Year
  Sex: Female

DRUGS (5)
  1. CHAMPIX [Suspect]
     Indication: SMOKING CESSATION THERAPY
     Dosage: UNK
  2. COZAAR [Concomitant]
     Indication: HYPERTENSION
     Dosage: UNK
  3. CIPRALEX [Concomitant]
     Indication: ANXIETY
     Dosage: 20 MG, 1X/DAY
  4. ISOPTIN - SLOW RELEASE [Concomitant]
     Indication: HYPERTENSION
     Dosage: 120 MG, 1X/DAY
  5. SYMBICORT [Concomitant]
     Indication: CHRONIC OBSTRUCTIVE PULMONARY DISEASE
     Dosage: UNK

REACTIONS (2)
  - APHASIA [None]
  - LARYNGOSPASM [None]
